FAERS Safety Report 13501025 (Version 1)
Quarter: 2017Q2

REPORT INFORMATION
  Report Type: Spontaneous
  Country: US (occurrence: US)
  Receive Date: 20170501
  Receipt Date: 20170501
  Transmission Date: 20170830
  Serious: No
  Sender: FDA-Public Use
  Company Number: US-ROCHE-1851606

PATIENT
  Sex: Female

DRUGS (5)
  1. ESBRIET [Suspect]
     Active Substance: PIRFENIDONE
     Indication: IDIOPATHIC PULMONARY FIBROSIS
     Route: 048
     Dates: start: 20160101
  2. VITAMIN A [Concomitant]
     Active Substance: VITAMIN A
  3. ALOE [Concomitant]
     Active Substance: ALOE
  4. FISH OIL [Concomitant]
     Active Substance: FISH OIL
  5. DELSYM [Concomitant]
     Active Substance: DEXTROMETHORPHAN

REACTIONS (1)
  - Dyspepsia [Unknown]
